FAERS Safety Report 7255527-4 (Version None)
Quarter: 2011Q1

REPORT INFORMATION
  Report Type: 
  Country: None (occurrence: None)
  Receive Date: 20110129
  Receipt Date: 20100402
  Transmission Date: 20110831
  Serious: No
  Sender: FDA-Public Use
  Company Number: US-ABBOTT-10P-163-0637072-00

PATIENT
  Sex: Female
  Weight: 67.192 kg

DRUGS (13)
  1. CLOBETASOL [Concomitant]
     Indication: PRODUCT USED FOR UNKNOWN INDICATION
     Route: 061
  2. HUMIRA [Suspect]
     Indication: PSORIATIC ARTHROPATHY
  3. EFFEXOR XR [Concomitant]
     Indication: DEPRESSION
  4. VIREAD [Concomitant]
     Indication: HEPATITIS B
  5. ALLEGRA [Concomitant]
     Indication: HYPERSENSITIVITY
  6. ADVAIR [Concomitant]
     Indication: PRODUCT USED FOR UNKNOWN INDICATION
     Dosage: 250-50
  7. ZIPROLINE CREME [Concomitant]
     Indication: PRODUCT USED FOR UNKNOWN INDICATION
     Route: 061
  8. LYRICA [Concomitant]
     Indication: FIBROMYALGIA
  9. HUMIRA [Suspect]
     Indication: PSORIASIS
     Dosage: 80MG 1ST WK,40 WK 2 WK 4, 40MG LOADING
     Route: 058
     Dates: start: 20100301
  10. NEXIUM [Concomitant]
     Indication: PRODUCT USED FOR UNKNOWN INDICATION
  11. TRAMADOL HCL [Concomitant]
     Indication: PAIN
  12. HUMIRA [Suspect]
     Indication: OSTEOARTHRITIS
  13. CARDIS HCT [Concomitant]
     Indication: BLOOD PRESSURE
     Dosage: 40/12.5 MG

REACTIONS (2)
  - RASH [None]
  - PSORIASIS [None]
